FAERS Safety Report 6372789-6 (Version None)
Quarter: 2009Q3

REPORT INFORMATION
  Report Type: 
  Country: None (occurrence: None)
  Receive Date: 20090924
  Receipt Date: 20081024
  Transmission Date: 20100115
  Serious: No
  Sender: FDA-Public Use
  Company Number: US-ASTRAZENECA-2008UW23887

PATIENT
  Age: 47 Year
  Sex: Male
  Weight: 88.5 kg

DRUGS (3)
  1. SEROQUEL [Suspect]
     Indication: BIPOLAR DISORDER
     Route: 048
     Dates: start: 20080401
  2. BLOOD PRESSURE [Concomitant]
     Indication: BLOOD PRESSURE
  3. UNSPECIFIED [Concomitant]
     Indication: BLOOD CHOLESTEROL

REACTIONS (1)
  - LABORATORY TEST ABNORMAL [None]
